FAERS Safety Report 15451946 (Version 2)
Quarter: 2019Q3

REPORT INFORMATION
  Report Type: Spontaneous
  Country: FR (occurrence: FR)
  Receive Date: 20181001
  Receipt Date: 20190730
  Transmission Date: 20191004
  Serious: Yes (Death, Life-Threatening, Hospitalization, Other)
  Sender: FDA-Public Use
  Company Number: FR-JUBILANT CADISTA PHARMACEUTICALS-2018JUB00387

PATIENT
  Age: 34 Year
  Sex: Male
  Weight: 63 kg

DRUGS (3)
  1. INCB039110 OR PLACEBO (CODE NOT BROKEN) [Suspect]
     Active Substance: ITACITINIB
     Indication: ACUTE GRAFT VERSUS HOST DISEASE
     Dosage: UNK
     Dates: start: 20180713, end: 20180821
  2. PREDNISONE. [Suspect]
     Active Substance: PREDNISONE
     Indication: ACUTE GRAFT VERSUS HOST DISEASE
     Dosage: 60 MG, 1X/DAY
     Route: 048
     Dates: start: 20180713
  3. NEORAL [Suspect]
     Active Substance: CYCLOSPORINE
     Dosage: 160 MG
     Route: 048

REACTIONS (13)
  - Necrotising fasciitis [Not Recovered/Not Resolved]
  - Rectal haemorrhage [Unknown]
  - Renal failure [Unknown]
  - Diarrhoea [Unknown]
  - Septic shock [Not Recovered/Not Resolved]
  - Soft tissue necrosis [Not Recovered/Not Resolved]
  - Rhabdomyolysis [Unknown]
  - Blister [Unknown]
  - Gastrointestinal disorder [Unknown]
  - Acute respiratory failure [Unknown]
  - Traumatic haematoma [Unknown]
  - Gastrointestinal perforation [Fatal]
  - Atrial fibrillation [Recovered/Resolved]

NARRATIVE: CASE EVENT DATE: 20180821
